FAERS Safety Report 7369729-X (Version None)
Quarter: 2011Q1

REPORT INFORMATION
  Report Type: 
  Country: None (occurrence: None)
  Receive Date: 20110317
  Receipt Date: 20110317
  Transmission Date: 20110831
  Serious: No
  Sender: FDA-Public Use
  Company Number: None

PATIENT
  Age: 79 Year
  Sex: Male
  Weight: 109.7705 kg

DRUGS (1)
  1. AMPYRA [Suspect]
     Dosage: 1 DAILY
     Dates: end: 20110124

REACTIONS (3)
  - DYSURIA [None]
  - URINARY TRACT INFECTION [None]
  - BLOOD URINE PRESENT [None]
